FAERS Safety Report 9158790 (Version 1)
Quarter: 2013Q1

REPORT INFORMATION
  Report Type: Spontaneous
  Country: US (occurrence: US)
  Receive Date: 20130110
  Receipt Date: 20130110
  Transmission Date: 20140127
  Serious: Yes (Hospitalization, Other)
  Sender: FDA-Public Use
  Company Number: US-RB-048067-12

PATIENT
  Age: 36 Year
  Sex: Male

DRUGS (6)
  1. SUBOXONE TABLETS [Suspect]
     Indication: DRUG DEPENDENCE
     Route: 060
  2. PROVIGIL [Suspect]
     Indication: PRODUCT USED FOR UNKNOWN INDICATION
     Dosage: DOSING DETAILS UNKNOWN
     Route: 048
  3. SEROQUEL [Concomitant]
     Indication: DEPRESSION
     Dosage: DOSING DETAILS UNKNOWN
     Route: 065
  4. NEURONTIN [Concomitant]
     Indication: NEURALGIA
     Dosage: DOSING DETAILS UNKNOWN
     Route: 065
  5. KAVA [Concomitant]
     Indication: AFFECTIVE DISORDER
     Dosage: DOSING DETAILS UNKNOWN
     Route: 065
  6. VALERIAN ROOT [Concomitant]
     Indication: AFFECTIVE DISORDER
     Dosage: DOSING DETAILS UNKNOWN
     Route: 065

REACTIONS (4)
  - Schizoaffective disorder [Recovered/Resolved]
  - Condition aggravated [Recovered/Resolved]
  - Mental disorder [Recovered/Resolved]
  - Thinking abnormal [Recovered/Resolved]
